FAERS Safety Report 13515593 (Version 1)
Quarter: 2017Q2

REPORT INFORMATION
  Report Type: Spontaneous
  Country: CA (occurrence: CA)
  Receive Date: 20170504
  Receipt Date: 20170504
  Transmission Date: 20170830
  Serious: Yes (Other)
  Sender: FDA-Public Use
  Company Number: CA-GILEAD-2017-0269568

PATIENT
  Age: 35 Year
  Sex: Male

DRUGS (11)
  1. LAMIVUDINE. [Concomitant]
     Active Substance: LAMIVUDINE
  2. DARUNAVIR [Concomitant]
     Active Substance: DARUNAVIR
  3. RITONAVIR. [Concomitant]
     Active Substance: RITONAVIR
  4. ABACAVIR. [Concomitant]
     Active Substance: ABACAVIR
  5. VIREAD [Suspect]
     Active Substance: TENOFOVIR DISOPROXIL FUMARATE
     Indication: HIV INFECTION
     Route: 065
  6. EFAVIRENZ [Suspect]
     Active Substance: EFAVIRENZ
     Indication: HIV INFECTION
     Route: 065
  7. AZIDOTHYMIDINE [Concomitant]
     Active Substance: ZIDOVUDINE
  8. RALTEGRAVIR. [Concomitant]
     Active Substance: RALTEGRAVIR
  9. ETRAVIRINE [Concomitant]
     Active Substance: ETRAVIRINE
  10. EMTRIVA [Suspect]
     Active Substance: EMTRICITABINE
     Indication: HIV INFECTION
     Route: 065
  11. LOPINAVIR [Concomitant]
     Active Substance: LOPINAVIR

REACTIONS (3)
  - Nephropathy toxic [Recovered/Resolved]
  - Therapeutic response decreased [Unknown]
  - HIV viraemia [Recovered/Resolved]
